FAERS Safety Report 19495824 (Version 1)
Quarter: 2021Q3

REPORT INFORMATION
  Report Type: Spontaneous
  Country: US (occurrence: US)
  Receive Date: 20210702
  Receipt Date: 20210702
  Transmission Date: 20211014
  Serious: No
  Sender: FDA-Public Use
  Company Number: None

PATIENT
  Sex: Male

DRUGS (1)
  1. DIVALPROEX ER [Suspect]
     Active Substance: DIVALPROEX SODIUM

REACTIONS (4)
  - Somnolence [None]
  - Product substitution issue [None]
  - Sleep disorder [None]
  - Anxiety [None]

NARRATIVE: CASE EVENT DATE: 20210702
